FAERS Safety Report 5491852-5 (Version None)
Quarter: 2007Q4

REPORT INFORMATION
  Report Type: 
  Country: None (occurrence: None)
  Receive Date: 20071018
  Receipt Date: 20071005
  Transmission Date: 20080405
  Serious: Yes (Hospitalization)
  Sender: FDA-Public Use
  Company Number: 2007S1009884

PATIENT
  Age: 58 Year
  Sex: Female

DRUGS (4)
  1. ATENOLOL [Suspect]
     Dosage: 100 MG; DAILY
  2. DILTIAZEM HYDROCHLORIDE [Suspect]
     Dosage: 360 MG; EVERY MORNING; 240 MG; AT BEDTIME
  3. CAPTOPRIL [Suspect]
     Dosage: 50 MG; TWICE A DAY
  4. HYDROCHLOROTHIAZIDE [Suspect]

REACTIONS (9)
  - ASTHENIA [None]
  - BLOOD CREATINE INCREASED [None]
  - BLOOD GLUCOSE INCREASED [None]
  - BLOOD POTASSIUM INCREASED [None]
  - BLOOD PRESSURE DECREASED [None]
  - BLOOD UREA INCREASED [None]
  - BRADYCARDIA [None]
  - NODAL RHYTHM [None]
  - SYNCOPE [None]
